FAERS Safety Report 8468661 (Version 9)
Quarter: 2012Q4

REPORT INFORMATION
  Report Type: 
  Country: US (occurrence: US)
  Receive Date: 20120320
  Receipt Date: 20120830
  Transmission Date: 20130627
  Serious: Yes (Hospitalization)
  Sender: FDA-Public Use
  Company Number: US-ASTRAZENECA-2011SE41525

PATIENT
  Age: 51 Year
  Sex: Female
  Weight: 95.3 kg

DRUGS (46)
  1. NEXIUM [Suspect]
     Indication: GASTROOESOPHAGEAL REFLUX DISEASE
     Route: 048
     Dates: start: 20050712
  2. NEXIUM [Suspect]
     Indication: GASTROOESOPHAGEAL REFLUX DISEASE
     Route: 048
     Dates: start: 2005, end: 2012
  3. NEXIUM [Suspect]
     Indication: GASTROOESOPHAGEAL REFLUX DISEASE
     Route: 048
     Dates: start: 2006
  4. NEXIUM [Suspect]
     Indication: GASTROOESOPHAGEAL REFLUX DISEASE
     Route: 048
     Dates: start: 2008
  5. NEXIUM [Suspect]
     Indication: GASTROOESOPHAGEAL REFLUX DISEASE
     Route: 048
     Dates: start: 20080409
  6. NEXIUM [Suspect]
     Indication: GASTROOESOPHAGEAL REFLUX DISEASE
     Route: 048
     Dates: start: 20090331, end: 20090414
  7. NEXIUM [Suspect]
     Indication: GASTROOESOPHAGEAL REFLUX DISEASE
     Route: 048
     Dates: start: 20100105
  8. CALCIUM [Concomitant]
     Indication: OSTEOPOROSIS
     Dates: start: 2005
  9. ISOSORBIDE/ISOSORBIDE MONONITRATE [Concomitant]
  10. ISOSORBIDE/ISOSORBIDE MONONITRATE [Concomitant]
     Dates: start: 20080409
  11. ISOSORBIDE/ISOSORBIDE MONONITRATE [Concomitant]
     Route: 048
     Dates: start: 20090331, end: 20090414
  12. ISOSORBIDE/ISOSORBIDE MONONITRATE [Concomitant]
     Dosage: ER 30 MG
     Dates: start: 20100105
  13. SPIRONOLACT [Concomitant]
  14. GABAPENTIN [Concomitant]
  15. GABAPENTIN [Concomitant]
  16. PLAVIX [Concomitant]
  17. PLAVIX [Concomitant]
     Dates: start: 20070614
  18. ATACAND HCT [Concomitant]
     Dosage: 32/12.5MG DAILY
     Route: 048
  19. ATACAND HCT [Concomitant]
     Dosage: 32/12.5 MG
     Dates: start: 20080409
  20. BENICAR HCT [Concomitant]
     Dosage: 40/12.5MG
  21. BENICAR HCT [Concomitant]
     Dosage: 40/12.5 MILLIGRAMS DAILY
     Dates: start: 20100105
  22. SINGULAIR [Concomitant]
  23. PROVERA [Concomitant]
     Indication: HAEMOSTASIS
  24. FESO4 [Concomitant]
     Indication: ANAEMIA
  25. LORTAB/NORCO [Concomitant]
     Indication: PAIN
     Dosage: 7.5 MG FOUR TIMES A DAY
     Dates: start: 20081007
  26. LORTAB/NORCO [Concomitant]
     Indication: PAIN
     Dosage: 10/325 MILLIGRAMS ONE BY MOUTH EVERY FOUR HOURS AS NEEDED
     Dates: start: 20100105
  27. LIDOCAINE [Concomitant]
     Indication: TRIGGER FINGER
     Dosage: 0.5CC
     Dates: start: 20081007
  28. KENALOG [Concomitant]
     Indication: TRIGGER FINGER
     Dosage: 0.5 CC
     Dates: start: 20081007
  29. KENALOG [Concomitant]
     Indication: TRIGGER FINGER
     Dosage: 40 MG NEBULIZED TWO TIMES DAILY ADD 40 MG TO AM AND PM NEB TREATMENT
     Route: 048
     Dates: start: 20090331, end: 20090414
  30. CRESTOR [Concomitant]
     Dates: start: 20070614
  31. ASPIRIN [Concomitant]
     Dates: start: 20070614
  32. ASPIRIN [Concomitant]
     Dates: start: 20080409
  33. ASPIRIN [Concomitant]
     Dosage: DAILY
     Dates: start: 20100105
  34. HCTZ [Concomitant]
     Dates: start: 20070614
  35. HCTZ [Concomitant]
     Dates: start: 20080409
  36. HCTZ [Concomitant]
     Dosage: TO BE TAKEN 1/2
     Route: 048
     Dates: start: 20090331, end: 20090414
  37. LIPITOR [Concomitant]
     Dates: start: 20080609
  38. ATACAND [Concomitant]
     Dosage: 32/12.5
     Dates: start: 20080409
  39. ATACAND [Concomitant]
     Route: 048
     Dates: start: 20090331, end: 20090414
  40. ULTRAM [Concomitant]
     Dates: start: 20080409
  41. ULTRAM [Concomitant]
     Route: 048
     Dates: start: 20100105
  42. ULTRAM [Concomitant]
     Route: 048
     Dates: start: 20090331, end: 20090414
  43. OMNICEF [Concomitant]
     Dates: start: 20080507
  44. KETORALAC [Concomitant]
     Dosage: 10 MILLIGRAMS BY MOUTH AS NEEDED
     Route: 048
     Dates: start: 20100105
  45. TEMAZEPAM [Concomitant]
     Route: 048
     Dates: start: 20090331, end: 20090405
  46. BENICAR [Concomitant]
     Dates: start: 20100825

REACTIONS (9)
  - Lower limb fracture [Unknown]
  - Ankle fracture [Unknown]
  - Osteoporosis [Unknown]
  - Upper limb fracture [Unknown]
  - Emotional distress [Unknown]
  - Scar [Unknown]
  - Limb crushing injury [Unknown]
  - Humerus fracture [Unknown]
  - Radius fracture [Unknown]
